FAERS Safety Report 6744351-4 (Version None)
Quarter: 2010Q2

REPORT INFORMATION
  Report Type: 
  Country: None (occurrence: None)
  Receive Date: 20100527
  Receipt Date: 20100521
  Transmission Date: 20101027
  Serious: Yes (Other)
  Sender: FDA-Public Use
  Company Number: BR-SANOFI-AVENTIS-2010SA029606

PATIENT
  Age: 60 Year
  Sex: Male
  Weight: 95 kg

DRUGS (13)
  1. LANTUS [Suspect]
     Route: 058
  2. OPTIPEN [Suspect]
  3. NOVORAPID [Concomitant]
     Route: 058
  4. METFORMIN HYDROCHLORIDE [Concomitant]
     Route: 048
  5. APROZIDE [Concomitant]
     Route: 048
  6. ZANIDIP [Concomitant]
     Indication: BLOOD PRESSURE
     Route: 048
  7. ATENOLOL [Concomitant]
     Indication: BLOOD PRESSURE
     Route: 048
  8. AMILORIDE HYDROCHLORIDE/FUROSEMIDE [Concomitant]
     Indication: DIURETIC THERAPY
     Route: 048
  9. SIMVASTATIN [Concomitant]
     Route: 048
  10. XENICAL [Concomitant]
     Route: 048
  11. CLOXAZOLAM [Concomitant]
     Route: 048
  12. SERTRALINE HCL [Concomitant]
     Indication: DEPRESSION
     Route: 048
  13. SERTRALINE HCL [Concomitant]
     Indication: ANXIETY
     Route: 048

REACTIONS (3)
  - SENSORY LOSS [None]
  - SKIN INFECTION [None]
  - SOFT TISSUE NECROSIS [None]
